FAERS Safety Report 17573587 (Version 1)
Quarter: 2020Q1

REPORT INFORMATION
  Report Type: Report from Study
  Country: US (occurrence: US)
  Receive Date: 20200323
  Receipt Date: 20200323
  Transmission Date: 20200409
  Serious: No
  Sender: FDA-Public Use
  Company Number: PHHY2018US200769

PATIENT
  Age: 30 Year
  Sex: Female
  Weight: 60.2 kg

DRUGS (22)
  1. CULTURELLE [Concomitant]
     Active Substance: LACTOBACILLUS RHAMNOSUS
     Indication: PROBIOTIC THERAPY
     Dosage: 1 DOSAGE FORM, QD (1 CAPSULE, QD)
     Route: 048
     Dates: start: 201603, end: 201712
  2. CIPROFLOXACIN. [Concomitant]
     Active Substance: CIPROFLOXACIN
     Dosage: 750 MILLIGRAM, BID
     Route: 048
     Dates: start: 20170919, end: 20171010
  3. LEVOFLOXACIN. [Concomitant]
     Active Substance: LEVOFLOXACIN
     Indication: INFECTIVE PULMONARY EXACERBATION OF CYSTIC FIBROSIS
     Dosage: 750 MILLIGRAM, QD
     Route: 048
     Dates: start: 20180222, end: 20180308
  4. DIAZEPAM. [Concomitant]
     Active Substance: DIAZEPAM
     Indication: NAUSEA
  5. PROAIR HFA [Concomitant]
     Active Substance: ALBUTEROL SULFATE
     Indication: CYSTIC FIBROSIS LUNG
     Dosage: 180 MICROGRAM, PRN
     Route: 055
     Dates: start: 2013
  6. CHOLECALCIFEROL [Concomitant]
     Active Substance: CHOLECALCIFEROL
     Indication: VITAMIN D DEFICIENCY
     Dosage: 1000 U, QD
     Route: 048
     Dates: start: 2011
  7. NUVARING [Concomitant]
     Active Substance: ETHINYL ESTRADIOL\ETONOGESTREL
     Indication: CONTRACEPTION
     Dosage: 1 DEVICE Q28 DAYS
     Route: 065
     Dates: start: 201506
  8. PULMOZYME [Concomitant]
     Active Substance: DORNASE ALFA
     Indication: CYSTIC FIBROSIS LUNG
     Dosage: 2.5 MILLIGRAM, QD
     Route: 055
     Dates: start: 2011
  9. TOBRAMYCIN. [Suspect]
     Active Substance: TOBRAMYCIN
     Indication: PNEUMONIA PSEUDOMONAL
     Dosage: 112 MG, BID
     Route: 055
     Dates: start: 201709
  10. IBUPROFEN. [Concomitant]
     Active Substance: IBUPROFEN
     Indication: SINUS PAIN
     Dosage: 200 MILLIGRAM, PRN
     Route: 048
     Dates: start: 1998
  11. ZOSYN [Concomitant]
     Active Substance: PIPERACILLIN SODIUM\TAZOBACTAM SODIUM
     Indication: PNEUMONIA PSEUDOMONAL
     Dosage: 4.5 GRAM, Q8H
     Route: 042
     Dates: start: 20180309, end: 20180316
  12. MULTIVITAMIN                       /00097801/ [Concomitant]
     Active Substance: VITAMINS
     Indication: NUTRITIONAL SUPPLEMENTATION
     Dosage: 1 DOSAGE FORM, QHS (1 TABLET, QHS)
     Route: 048
     Dates: start: 20180303
  13. CETIRIZINE [Concomitant]
     Active Substance: CETIRIZINE HYDROCHLORIDE
     Indication: RHINITIS ALLERGIC
     Dosage: 10 MILLIGRAM, QD
     Route: 048
     Dates: start: 201603
  14. IBUPROFEN. [Concomitant]
     Active Substance: IBUPROFEN
     Indication: PYREXIA
  15. CIPROFLOXACIN. [Concomitant]
     Active Substance: CIPROFLOXACIN
     Indication: INFECTIVE PULMONARY EXACERBATION OF CYSTIC FIBROSIS
     Dosage: 750 MILLIGRAM, BID
     Route: 048
     Dates: start: 20170817, end: 20170907
  16. NEBCIN [Concomitant]
     Active Substance: TOBRAMYCIN SULFATE
     Indication: PNEUMONIA PSEUDOMONAL
     Dosage: 560 MILLIGRAM, QD
     Route: 042
     Dates: start: 20180309
  17. FERROUS GLUCONATE [Concomitant]
     Active Substance: FERROUS GLUCONATE
     Indication: ANAEMIA
     Dosage: 324 MILLIGRAM, BID
     Route: 048
     Dates: start: 20180314
  18. CAYSTON [Suspect]
     Active Substance: AZTREONAM
     Indication: PNEUMONIA PSEUDOMONAL
     Dosage: 75 MILLIGRAM, TID
     Route: 055
     Dates: start: 20171120
  19. NEBCIN [Concomitant]
     Active Substance: TOBRAMYCIN SULFATE
     Dosage: 420 MILLIGRAM, QD
     Route: 042
     Dates: start: 20180312, end: 20180312
  20. DIAZEPAM. [Concomitant]
     Active Substance: DIAZEPAM
     Indication: DIZZINESS
     Dosage: 5 MILLIGRAM, PRN
     Route: 048
     Dates: start: 20180320
  21. FLUTICASONE. [Concomitant]
     Active Substance: FLUTICASONE
     Indication: RHINITIS ALLERGIC
     Dosage: 100 MICROGRAM, BID
     Route: 045
     Dates: start: 2013
  22. CALCIUM [Concomitant]
     Active Substance: CALCIUM
     Indication: NUTRITIONAL SUPPLEMENTATION
     Dosage: 1 DOSAGE FORM, QD (1 TABLET, QD)
     Route: 048
     Dates: start: 20180414

REACTIONS (1)
  - Exposure during pregnancy [Unknown]
